FAERS Safety Report 7954466-0 (Version None)
Quarter: 2011Q4

REPORT INFORMATION
  Report Type: 
  Country: None (occurrence: None)
  Receive Date: 20111202
  Receipt Date: 20111121
  Transmission Date: 20120403
  Serious: Yes (Other)
  Sender: FDA-Public Use
  Company Number: CN-BRISTOL-MYERS SQUIBB COMPANY-16241531

PATIENT
  Age: 12 Year
  Sex: Female

DRUGS (1)
  1. CEPHALEXIN [Suspect]
     Indication: PHARYNGITIS
     Dosage: INCUBATION PERIOD FOR FIRST TIME-8 DAYS; SECOND TIME- 2 DAY

REACTIONS (1)
  - PEMPHIGUS [None]
